FAERS Safety Report 6251300-4 (Version None)
Quarter: 2009Q2

REPORT INFORMATION
  Report Type: 
  Country: None (occurrence: None)
  Receive Date: 20090630
  Receipt Date: 20090625
  Transmission Date: 20091009
  Serious: Yes (Death, Other)
  Sender: FDA-Public Use
  Company Number: PHHY2008MX28989

PATIENT
  Sex: Female

DRUGS (1)
  1. ZELMAC [Suspect]
     Indication: IRRITABLE BOWEL SYNDROME
     Dosage: 6 MG, 2 TABLETS/DAY
     Route: 048
     Dates: start: 20071020

REACTIONS (3)
  - BREAST CANCER [None]
  - METASTASES TO BONE [None]
  - METASTASES TO LIVER [None]
